FAERS Safety Report 9257961 (Version 2)
Quarter: 2013Q2

REPORT INFORMATION
  Report Type: Spontaneous
  Country: US (occurrence: US)
  Receive Date: 20130426
  Receipt Date: 20130624
  Transmission Date: 20140414
  Serious: Yes (Other)
  Sender: FDA-Public Use
  Company Number: US-SANOFI-AVENTIS-2013SA042268

PATIENT
  Age: 46 Year
  Sex: Female
  Weight: 65.77 kg

DRUGS (6)
  1. AUBAGIO [Suspect]
     Indication: MULTIPLE SCLEROSIS
     Route: 048
     Dates: end: 20130316
  2. COLESTYRAMINE [Concomitant]
  3. FAMPRIDINE [Concomitant]
     Indication: PERONEAL NERVE PALSY
     Dates: start: 2010
  4. ZOLOFT [Concomitant]
     Indication: DEPRESSION
     Dates: start: 2011
  5. BACLOFEN [Concomitant]
     Indication: MUSCLE SPASTICITY
     Dates: start: 2005
  6. ALL OTHER THERAPEUTIC PRODUCTS [Concomitant]
     Indication: FATIGUE
     Dates: start: 2010

REACTIONS (8)
  - Balance disorder [Recovered/Resolved]
  - Vertigo [Recovered/Resolved]
  - Fall [Recovered/Resolved]
  - Arthralgia [Recovered/Resolved]
  - Muscle spasticity [Recovered/Resolved]
  - Dizziness [Recovered/Resolved]
  - Musculoskeletal stiffness [Recovered/Resolved]
  - Paraesthesia [Recovered/Resolved]
